FAERS Safety Report 16398234 (Version 1)
Quarter: 2019Q2

REPORT INFORMATION
  Report Type: Spontaneous
  Country: US (occurrence: US)
  Receive Date: 20190606
  Receipt Date: 20190606
  Transmission Date: 20190711
  Serious: Yes (Other)
  Sender: FDA-Public Use
  Company Number: US-AUROBINDO-AUR-APL-2019-031681

PATIENT

DRUGS (4)
  1. ETOPOSIDE. [Concomitant]
     Active Substance: ETOPOSIDE
     Indication: CONGENITAL RETINOBLASTOMA
     Dosage: 10 MILLIGRAM/KILOGRAM DIVIDED IN 2 DAYS
     Route: 065
  2. MELPHALAN. [Suspect]
     Active Substance: MELPHALAN
     Indication: CONGENITAL RETINOBLASTOMA
     Dosage: 5 MILLIGRAM
     Route: 013
  3. VINCRISTINE SULFATE. [Suspect]
     Active Substance: VINCRISTINE SULFATE
     Indication: CONGENITAL RETINOBLASTOMA
     Dosage: 0.05 MILLIGRAM/KILOGRAM
     Route: 065
  4. CARBOPLATIN. [Concomitant]
     Active Substance: CARBOPLATIN
     Indication: CONGENITAL RETINOBLASTOMA
     Dosage: 18.6 MILLIGRAM/KILOGRAM
     Route: 065

REACTIONS (4)
  - Ischaemia [Unknown]
  - Product use in unapproved indication [Unknown]
  - Vocal cord paresis [Unknown]
  - Retinal depigmentation [Unknown]
